FAERS Safety Report 6125647-6 (Version None)
Quarter: 2009Q1

REPORT INFORMATION
  Report Type: 
  Country: None (occurrence: None)
  Receive Date: 20090317
  Receipt Date: 20090303
  Transmission Date: 20090719
  Serious: Yes (Hospitalization)
  Sender: FDA-Public Use
  Company Number: DSJ-2009-00594

PATIENT
  Age: 73 Year
  Sex: Female
  Weight: 57.5 kg

DRUGS (2)
  1. OLMETEC (OLMESARTAN MEDOXOMIL) (TABLET) (OLMESARTAN MEDOXOMIL) [Suspect]
     Indication: HYPERTENSION
     Dosage: 20 MG, PER ORAL
     Route: 048
     Dates: start: 20080221, end: 20080919
  2. NORVASC [Concomitant]

REACTIONS (7)
  - AUTOIMMUNE HEPATITIS [None]
  - BILIARY CIRRHOSIS PRIMARY [None]
  - CARBOHYDRATE ANTIGEN 19-9 INCREASED [None]
  - CHOLELITHIASIS [None]
  - HEPATIC CYST [None]
  - HEPATITIS [None]
  - MALAISE [None]
